FAERS Safety Report 22280954 (Version 6)
Quarter: 2023Q4

REPORT INFORMATION
  Report Type: Report from Study
  Country: CA (occurrence: CA)
  Receive Date: 20230503
  Receipt Date: 20231108
  Transmission Date: 20240109
  Serious: Yes (Other)
  Sender: FDA-Public Use
  Company Number: CA-BIOGEN-2022BI01174226

PATIENT
  Age: 48 Year
  Sex: Female

DRUGS (4)
  1. TYSABRI [Suspect]
     Active Substance: NATALIZUMAB
     Indication: Multiple sclerosis
     Route: 050
     Dates: start: 20221205
  2. TYSABRI [Suspect]
     Active Substance: NATALIZUMAB
     Route: 050
     Dates: start: 20221205
  3. TYSABRI [Suspect]
     Active Substance: NATALIZUMAB
     Route: 050
     Dates: start: 20221205
  4. TYSABRI [Suspect]
     Active Substance: NATALIZUMAB
     Route: 050
     Dates: start: 20221205

REACTIONS (15)
  - Blood pressure increased [Not Recovered/Not Resolved]
  - Drug monitoring procedure incorrectly performed [Unknown]
  - Infusion site pain [Not Recovered/Not Resolved]
  - Gait disturbance [Unknown]
  - Blood alkaline phosphatase increased [Unknown]
  - Mean cell haemoglobin decreased [Unknown]
  - Gamma-glutamyltransferase increased [Unknown]
  - Red cell distribution width increased [Unknown]
  - Red blood cell count increased [Unknown]
  - High density lipoprotein decreased [Unknown]
  - High density lipoprotein increased [Unknown]
  - Blood triglycerides increased [Unknown]
  - Fatigue [Unknown]
  - White blood cell count increased [Unknown]
  - Alanine aminotransferase increased [Unknown]

NARRATIVE: CASE EVENT DATE: 20221205
